FAERS Safety Report 4736484-9 (Version None)
Quarter: 2005Q3

REPORT INFORMATION
  Report Type: 
  Country: None (occurrence: None)
  Receive Date: 20050804
  Receipt Date: 20050722
  Transmission Date: 20060218
  Serious: Yes (Hospitalization, Other)
  Sender: FDA-Public Use
  Company Number: KII-2005-0017685

PATIENT
  Age: 47 Year
  Sex: Female

DRUGS (5)
  1. OXYCODONE HCL [Suspect]
     Dosage: SEE TEXT
     Route: 048
  2. AMITRIPTYLINE HCL [Suspect]
     Dosage: SEE TEXT
     Route: 048
  3. BENZODIAZEPINE DERIVATIVES ( ) [Suspect]
     Dosage: SEE TEXT, ORAL
     Route: 048
  4. METHADONE HCL [Suspect]
     Dosage: ORAL
     Route: 048
  5. VALPROIC ACID [Suspect]
     Dosage: ORAL
     Route: 048

REACTIONS (12)
  - AGITATION [None]
  - BLOOD CALCIUM DECREASED [None]
  - BLOOD CREATINE PHOSPHOKINASE INCREASED [None]
  - BLOOD CREATINE PHOSPHOKINASE MB INCREASED [None]
  - BLOOD UREA DECREASED [None]
  - COMA [None]
  - HAEMATOCRIT DECREASED [None]
  - HAEMOGLOBIN DECREASED [None]
  - MULTIPLE DRUG OVERDOSE [None]
  - RED BLOOD CELL COUNT DECREASED [None]
  - TACHYCARDIA [None]
  - WHITE BLOOD CELL COUNT INCREASED [None]
